FAERS Safety Report 8792636 (Version 2)
Quarter: 2015Q1

REPORT INFORMATION
  Report Type: Report from Study
  Country: US (occurrence: US)
  Receive Date: 20120918
  Receipt Date: 20150312
  Transmission Date: 20150721
  Serious: Yes (Death)
  Sender: FDA-Public Use
  Company Number: US-ROCHE-1102953

PATIENT
  Age: 80 Year
  Sex: Male

DRUGS (11)
  1. VP-16 [Concomitant]
     Active Substance: ETOPOSIDE
  2. CISPLATIN. [Concomitant]
     Active Substance: CISPLATIN
     Route: 065
  3. MANNITOL. [Concomitant]
     Active Substance: MANNITOL
     Route: 065
  4. CAPTOPRIL. [Concomitant]
     Active Substance: CAPTOPRIL
  5. GRANISETRON [Concomitant]
     Active Substance: GRANISETRON
     Route: 065
  6. FOLIC ACID. [Concomitant]
     Active Substance: FOLIC ACID
  7. DILTIAZEM [Concomitant]
     Active Substance: DILTIAZEM
  8. ALOXI [Concomitant]
     Active Substance: PALONOSETRON HYDROCHLORIDE
     Route: 065
  9. DIPYRIDAMOLE. [Concomitant]
     Active Substance: DIPYRIDAMOLE
  10. AVASTIN [Suspect]
     Active Substance: BEVACIZUMAB
     Indication: MALIGNANT RESPIRATORY TRACT NEOPLASM
     Route: 065
     Dates: start: 20050415
  11. DECADRON [Concomitant]
     Active Substance: DEXAMETHASONE
     Route: 065

REACTIONS (14)
  - Asthenia [Unknown]
  - Muscular weakness [Unknown]
  - Disease progression [Unknown]
  - Cushingoid [Unknown]
  - Pain in extremity [Unknown]
  - Dehydration [Unknown]
  - Melanocytic naevus [Unknown]
  - Fatigue [Unknown]
  - Musculoskeletal pain [Unknown]
  - Back pain [Unknown]
  - Off label use [Unknown]
  - Skin discolouration [Unknown]
  - Death [Fatal]
  - Urinary tract infection [Unknown]

NARRATIVE: CASE EVENT DATE: 20050625
